FAERS Safety Report 24554234 (Version 1)
Quarter: 2024Q4

REPORT INFORMATION
  Report Type: Spontaneous
  Country: TR (occurrence: TR)
  Receive Date: 20241028
  Receipt Date: 20241028
  Transmission Date: 20250114
  Serious: Yes (Life-Threatening, Hospitalization)
  Sender: ACCORD
  Company Number: TR-Accord-453096

PATIENT
  Age: 19 Year
  Sex: Male

DRUGS (4)
  1. CLOZAPINE [Suspect]
     Active Substance: CLOZAPINE
     Indication: Bipolar disorder
     Dosage: 18 CLOZAPINE (100 MG)
  2. VALPROATE SODIUM [Concomitant]
     Active Substance: VALPROATE SODIUM
     Indication: Product used for unknown indication
  3. METHYLPHENIDATE [Concomitant]
     Active Substance: METHYLPHENIDATE
     Indication: Product used for unknown indication
  4. LURASIDONE [Concomitant]
     Active Substance: LURASIDONE
     Indication: Product used for unknown indication

REACTIONS (9)
  - Intentional overdose [Recovering/Resolving]
  - Suicide attempt [Recovering/Resolving]
  - Loss of consciousness [Recovered/Resolved]
  - Metabolic acidosis [Recovering/Resolving]
  - Hypoxia [Recovered/Resolved]
  - Cytotoxic lesions of corpus callosum [Recovering/Resolving]
  - Lumbosacral radiculoplexus neuropathy [Recovering/Resolving]
  - Immune-mediated vasculitis [Recovering/Resolving]
  - Immune-mediated neuropathy [Recovering/Resolving]
